FAERS Safety Report 16143023 (Version 1)
Quarter: 2019Q2

REPORT INFORMATION
  Report Type: Spontaneous
  Country: BE (occurrence: BE)
  Receive Date: 20190401
  Receipt Date: 20190401
  Transmission Date: 20190711
  Serious: Yes (Other)
  Sender: FDA-Public Use
  Company Number: BE-SA-2019SA071361

PATIENT
  Age: 30 Year
  Sex: Female

DRUGS (5)
  1. ACYCLOVIR [ACICLOVIR] [Concomitant]
     Active Substance: ACYCLOVIR
     Dosage: 200 MG
     Route: 065
  2. VENTOLIN [Concomitant]
     Active Substance: ALBUTEROL SULFATE
     Dosage: UNK UNK, UNK
     Route: 065
  3. D-CURE CALCIUM [Concomitant]
     Dosage: UNK UNK, UNK
     Route: 065
  4. MOMETASON [Concomitant]
     Active Substance: MOMETASONE FUROATE
  5. LEMTRADA [Suspect]
     Active Substance: ALEMTUZUMAB
     Indication: MULTIPLE SCLEROSIS
     Dosage: UNK UNK, UNK
     Route: 041
     Dates: start: 20190311, end: 20190312

REACTIONS (13)
  - Pneumonia [Unknown]
  - Productive cough [Unknown]
  - Lymphocyte count decreased [Unknown]
  - Haemoglobin decreased [Unknown]
  - Haemoptysis [Unknown]
  - Chest X-ray abnormal [Unknown]
  - Monocyte count decreased [Unknown]
  - C-reactive protein increased [Unknown]
  - Neutrophil count increased [Unknown]
  - Dyspnoea [Unknown]
  - Haematocrit decreased [Unknown]
  - Asthma [Unknown]
  - Gamma-glutamyltransferase increased [Unknown]

NARRATIVE: CASE EVENT DATE: 20190312
